FAERS Safety Report 7782590-4 (Version None)
Quarter: 2011Q3

REPORT INFORMATION
  Report Type: 
  Country: None (occurrence: None)
  Receive Date: 20110928
  Receipt Date: 20110919
  Transmission Date: 20111222
  Serious: Yes (Other)
  Sender: FDA-Public Use
  Company Number: DE-US-EMD SERONO, INC.-7079424

PATIENT
  Sex: Male
  Weight: 17 kg

DRUGS (6)
  1. SAIZEN [Suspect]
     Route: 058
     Dates: start: 20080117, end: 20080626
  2. SAIZEN [Suspect]
     Route: 058
     Dates: start: 20080627, end: 20080712
  3. SAIZEN [Suspect]
     Route: 058
     Dates: start: 20090713, end: 20101010
  4. LEVOTHYROXINE SODIUM [Concomitant]
     Indication: AUTOIMMUNE THYROIDITIS
  5. SAIZEN [Suspect]
     Route: 058
     Dates: start: 20101011, end: 20110509
  6. SAIZEN [Suspect]
     Indication: GROWTH HORMONE DEFICIENCY
     Route: 058
     Dates: start: 20070824, end: 20080116

REACTIONS (1)
  - PITUITARY TUMOUR BENIGN [None]
